FAERS Safety Report 15386350 (Version 7)
Quarter: 2019Q1

REPORT INFORMATION
  Report Type: Spontaneous
  Country: HU (occurrence: HU)
  Receive Date: 20180914
  Receipt Date: 20190204
  Transmission Date: 20190417
  Serious: Yes (Hospitalization, Other)
  Sender: FDA-Public Use
  Company Number: HU-MYLANLABS-2018M1067117

PATIENT
  Age: 69 Year
  Sex: Female

DRUGS (19)
  1. RAMIPRIL. [Suspect]
     Active Substance: RAMIPRIL
     Dosage: 10 MG, QD
     Route: 065
  2. DOXAZOSIN [Suspect]
     Active Substance: DOXAZOSIN\DOXAZOSIN MESYLATE
     Indication: HYPERTENSION
     Dosage: UNK UNK, QD
     Route: 065
  3. BETAHISTINE [Suspect]
     Active Substance: BETAHISTINE
     Indication: HYPERTENSION
     Dosage: UNK UNK, QD
     Route: 065
  4. ALPRAZOLAM. [Suspect]
     Active Substance: ALPRAZOLAM
     Indication: HYPERTENSION
     Dosage: UNK, PRN (CAN BE REPEATED IN EVERY HALF AN HOUR)
     Route: 065
  5. NITROMINT [Suspect]
     Active Substance: NITROGLYCERIN
     Dosage: UNK, AS NEEDED
  6. NITROMINT [Suspect]
     Active Substance: NITROGLYCERIN
     Indication: HYPERTENSION
     Dosage: UNK,PRN (2 PUFFS/0.5 HOURS)
     Route: 065
  7. HYDROCHLOROTHIAZIDE/LOSARTAN [Suspect]
     Active Substance: HYDROCHLOROTHIAZIDE\LOSARTAN
     Indication: VERTIGO
  8. AMLODIPINE [Suspect]
     Active Substance: AMLODIPINE BESYLATE
     Indication: HYPERTENSION
     Dosage: 10 MILLIGRAM, QD
     Route: 065
  9. AMLODIPINE [Suspect]
     Active Substance: AMLODIPINE BESYLATE
     Dosage: 10/10 MG, QD
     Route: 065
  10. CAPTOPRIL. [Suspect]
     Active Substance: CAPTOPRIL
     Indication: SALVAGE THERAPY
  11. NITROMINT [Suspect]
     Active Substance: NITROGLYCERIN
     Dosage: UNK UNK, PRN (2 PUFFS/0.5 HOURS)
     Route: 065
  12. INDAPAMIDE. [Suspect]
     Active Substance: INDAPAMIDE
     Indication: HYPERTENSION
     Dosage: UNK, QD
     Route: 065
  13. RILMENIDINE [Concomitant]
     Active Substance: RILMENIDINE
     Indication: PRODUCT USED FOR UNKNOWN INDICATION
     Dosage: UNK, BID
     Route: 065
  14. NITROMINT [Concomitant]
     Active Substance: NITROGLYCERIN
     Indication: HYPERTENSION
     Dosage: PRN (2 PUFFS/0.5 HOURS)
  15. HYDROCHLOROTHIAZIDE/LOSARTAN [Suspect]
     Active Substance: HYDROCHLOROTHIAZIDE\LOSARTAN
     Indication: HYPERTENSION
     Dosage: UNK
     Route: 065
     Dates: start: 2015
  16. RAMIPRIL. [Suspect]
     Active Substance: RAMIPRIL
     Indication: HYPERTENSION
     Dosage: UNK, QD
     Route: 065
  17. ALPRAZOLAM. [Suspect]
     Active Substance: ALPRAZOLAM
     Indication: SALVAGE THERAPY
     Dosage: 3 UNK, TID
     Route: 065
  18. CAPTOPRIL. [Suspect]
     Active Substance: CAPTOPRIL
     Indication: HYPERTENSION
     Dosage: UNK, PRN (CAN BE REPEATED IN EVERY HALF AN HOUR)
     Route: 065
  19. ACETYLSALICYLIC ACID [Suspect]
     Active Substance: ASPIRIN
     Indication: HYPERTENSION
     Dosage: UNK, QD
     Route: 065

REACTIONS (13)
  - Oedema peripheral [Recovered/Resolved]
  - Decreased activity [None]
  - Left ventricular hypertrophy [Unknown]
  - Hypertension [Recovered/Resolved]
  - Heart valve incompetence [Unknown]
  - Renal impairment [Unknown]
  - Drug ineffective [Unknown]
  - Hypotension [Recovered/Resolved]
  - Blood pressure fluctuation [Recovered/Resolved]
  - Weight increased [None]
  - Hyperlipidaemia [Unknown]
  - Overweight [Unknown]
  - Retinal vascular disorder [Unknown]
